FAERS Safety Report 6821276-7 (Version None)
Quarter: 2010Q3

REPORT INFORMATION
  Report Type: 
  Country: None (occurrence: None)
  Receive Date: 20100707
  Receipt Date: 20080616
  Transmission Date: 20110219
  Serious: No
  Sender: FDA-Public Use
  Company Number: US-PFIZER INC-2008047223

PATIENT
  Sex: Male
  Weight: 72.7 kg

DRUGS (8)
  1. ZOLOFT [Suspect]
     Indication: DEPRESSION
     Route: 048
     Dates: start: 20080415
  2. ZOLOFT [Suspect]
     Indication: ANXIETY
  3. WELCHOL [Concomitant]
  4. VYTORIN [Concomitant]
  5. METOPROLOL [Concomitant]
  6. ACETYLSALICYLIC ACID [Concomitant]
  7. MIRTAZAPINE [Concomitant]
  8. LEVOTHYROXINE SODIUM [Concomitant]

REACTIONS (4)
  - ADVERSE EVENT [None]
  - EJACULATION DELAYED [None]
  - FATIGUE [None]
  - WEIGHT INCREASED [None]
